FAERS Safety Report 8250959-X (Version None)
Quarter: 2012Q2

REPORT INFORMATION
  Report Type: 
  Country: None (occurrence: None)
  Receive Date: 20120402
  Receipt Date: 20120323
  Transmission Date: 20120825
  Serious: Yes (Hospitalization)
  Sender: FDA-Public Use
  Company Number: FR-SANOFI-AVENTIS-2012SA020198

PATIENT
  Age: 65 Year
  Sex: Female

DRUGS (10)
  1. DAFLON [Concomitant]
  2. MYCOPHENOLATE MOFETIL (CELLCEPT) [Suspect]
     Indication: SYSTEMIC LUPUS ERYTHEMATOSUS DISEASE ACTIVITY INDEX ABNORMAL
     Route: 048
     Dates: start: 20111205
  3. LEVOTHYROXINE SODIUM [Concomitant]
  4. LOPRESSOR [Concomitant]
  5. PLAQUENIL [Suspect]
     Indication: SYSTEMIC LUPUS ERYTHEMATOSUS DISEASE ACTIVITY INDEX ABNORMAL
     Route: 048
     Dates: start: 20111125, end: 20111207
  6. CORTICOSTEROIDS [Concomitant]
     Indication: SYSTEMIC LUPUS ERYTHEMATOSUS DISEASE ACTIVITY INDEX ABNORMAL
     Dates: start: 20111104
  7. LASIX [Concomitant]
  8. POTASSIUM CHLORIDE [Concomitant]
  9. EUPRESSYL [Concomitant]
  10. FENOFIBRATE [Concomitant]

REACTIONS (1)
  - NEUTROPENIA [None]
